FAERS Safety Report 13436601 (Version 1)
Quarter: 2017Q2

REPORT INFORMATION
  Report Type: Spontaneous
  Country: US (occurrence: US)
  Receive Date: 20170412
  Receipt Date: 20170412
  Transmission Date: 20170830
  Serious: Yes (Other)
  Sender: FDA-Public Use
  Company Number: None

PATIENT
  Age: 61 Year
  Sex: Male
  Weight: 79.9 kg

DRUGS (1)
  1. DIVALPROEX 500MG [Suspect]
     Active Substance: DIVALPROEX SODIUM
     Dosage: 500MG 3 PO BID ORAL
     Route: 048
     Dates: start: 20150928, end: 20161003

REACTIONS (1)
  - Seizure [None]
